FAERS Safety Report 5463519-0 (Version None)
Quarter: 2007Q3

REPORT INFORMATION
  Report Type: 
  Country: None (occurrence: None)
  Receive Date: 20070920
  Receipt Date: 20070910
  Transmission Date: 20080115
  Serious: Yes (Other)
  Sender: FDA-Public Use
  Company Number: GB-PFIZER INC-2007076415

PATIENT
  Sex: Female

DRUGS (3)
  1. MACUGEN [Suspect]
     Route: 031
  2. WARFARIN SODIUM [Concomitant]
     Dosage: DAILY DOSE:4MG
  3. ANTIBIOTICS [Concomitant]

REACTIONS (2)
  - ECCHYMOSIS [None]
  - INTERNATIONAL NORMALISED RATIO INCREASED [None]
